FAERS Safety Report 11913121 (Version 10)
Quarter: 2016Q4

REPORT INFORMATION
  Report Type: Spontaneous
  Country: US (occurrence: US)
  Receive Date: 20160113
  Receipt Date: 20161201
  Transmission Date: 20170206
  Serious: No
  Sender: FDA-Public Use
  Company Number: US-009507513-1512USA012515

PATIENT
  Age: 22 Year
  Sex: Female
  Weight: 77.55 kg

DRUGS (1)
  1. IMPLANON [Suspect]
     Active Substance: ETONOGESTREL
     Dosage: 1 IMPLANT; EVERY 3 YEARS, LEFT ARM
     Route: 059
     Dates: start: 201301

REACTIONS (6)
  - Incorrect drug administration duration [Unknown]
  - Device difficult to use [Not Recovered/Not Resolved]
  - Surgery [Unknown]
  - Implant site scar [Unknown]
  - Complication associated with device [Not Recovered/Not Resolved]
  - Implant site fibrosis [Unknown]

NARRATIVE: CASE EVENT DATE: 201601
